FAERS Safety Report 11651935 (Version 1)
Quarter: 2015Q4

REPORT INFORMATION
  Report Type: Spontaneous
  Country: US (occurrence: None)
  Receive Date: 20151021
  Receipt Date: 20151021
  Transmission Date: 20160304
  Serious: No
  Sender: FDA-Public Use
  Company Number: None

PATIENT
  Age: 61 Year
  Sex: Female
  Weight: 57.15 kg

DRUGS (3)
  1. PRESER VISION AREDS 2 FORMULA [Concomitant]
  2. MOVEFREE [Concomitant]
  3. HARVONI [Suspect]
     Active Substance: LEDIPASVIR\SOFOSBUVIR
     Indication: HEPATITIS C
     Dosage: 90MG/400MG?1 PER DAY?1 PER DAY?SWALLOWED
     Route: 048
     Dates: start: 20150609, end: 20150905

REACTIONS (2)
  - Pain in extremity [None]
  - Weight decreased [None]

NARRATIVE: CASE EVENT DATE: 20150807
